FAERS Safety Report 21799059 (Version 1)
Quarter: 2022Q4

REPORT INFORMATION
  Report Type: Report from Study
  Country: US (occurrence: US)
  Receive Date: 20221230
  Receipt Date: 20221230
  Transmission Date: 20230112
  Serious: Yes (Other)
  Sender: FDA-Public Use
  Company Number: US-TAKEDA-2022TUS100525

PATIENT
  Age: 29 Year
  Sex: Female

DRUGS (83)
  1. PARATHYROID HORMONE [Suspect]
     Active Substance: PARATHYROID HORMONE
     Indication: Hypoparathyroidism
     Dosage: 50 MICROGRAM, QD
     Route: 065
     Dates: start: 20150909, end: 20160106
  2. PARATHYROID HORMONE [Suspect]
     Active Substance: PARATHYROID HORMONE
     Indication: Hypoparathyroidism
     Dosage: 50 MICROGRAM, QD
     Route: 065
     Dates: start: 20150909, end: 20160106
  3. PARATHYROID HORMONE [Suspect]
     Active Substance: PARATHYROID HORMONE
     Indication: Hypoparathyroidism
     Dosage: 50 MICROGRAM, QD
     Route: 065
     Dates: start: 20150909, end: 20160106
  4. PARATHYROID HORMONE [Suspect]
     Active Substance: PARATHYROID HORMONE
     Dosage: 75 MICROGRAM, QD
     Route: 065
     Dates: start: 20160206, end: 20161003
  5. PARATHYROID HORMONE [Suspect]
     Active Substance: PARATHYROID HORMONE
     Dosage: 75 MICROGRAM, QD
     Route: 065
     Dates: start: 20160206, end: 20161003
  6. PARATHYROID HORMONE [Suspect]
     Active Substance: PARATHYROID HORMONE
     Dosage: 75 MICROGRAM, QD
     Route: 065
     Dates: start: 20160206, end: 20161003
  7. PARATHYROID HORMONE [Suspect]
     Active Substance: PARATHYROID HORMONE
     Dosage: 100 MICROGRAM, QD
     Route: 065
     Dates: start: 20161003, end: 20161003
  8. PARATHYROID HORMONE [Suspect]
     Active Substance: PARATHYROID HORMONE
     Dosage: 100 MICROGRAM, QD
     Route: 065
     Dates: start: 20161003, end: 20161003
  9. PARATHYROID HORMONE [Suspect]
     Active Substance: PARATHYROID HORMONE
     Dosage: 100 MICROGRAM, QD
     Route: 065
     Dates: start: 20161003, end: 20161003
  10. DIAZEPAM [Concomitant]
     Active Substance: DIAZEPAM
     Indication: Anxiety
     Dosage: UNK
     Route: 058
     Dates: start: 20140114, end: 20170530
  11. IBUPROFEN [Concomitant]
     Active Substance: IBUPROFEN
     Indication: Pain
     Dosage: UNK
     Route: 048
     Dates: start: 20140717, end: 20170510
  12. ZOFRAN [Concomitant]
     Active Substance: ONDANSETRON HYDROCHLORIDE
     Indication: Nausea
     Dosage: UNK
     Dates: start: 20140409
  13. ZOFRAN [Concomitant]
     Active Substance: ONDANSETRON HYDROCHLORIDE
     Indication: Catheter site pain
     Dosage: UNK
     Route: 048
     Dates: start: 20141117, end: 20141117
  14. ZOFRAN [Concomitant]
     Active Substance: ONDANSETRON HYDROCHLORIDE
     Indication: Seizure
     Dosage: UNK
     Route: 042
     Dates: start: 20150108, end: 20150108
  15. ZOFRAN [Concomitant]
     Active Substance: ONDANSETRON HYDROCHLORIDE
     Indication: Pain
     Dosage: UNK
     Route: 042
     Dates: start: 20150410, end: 20150410
  16. ZOFRAN [Concomitant]
     Active Substance: ONDANSETRON HYDROCHLORIDE
     Dosage: UNK
     Route: 042
     Dates: start: 20150601, end: 20150601
  17. ZOFRAN [Concomitant]
     Active Substance: ONDANSETRON HYDROCHLORIDE
     Dosage: UNK
     Route: 042
     Dates: start: 20151025, end: 20151025
  18. POTASSIUM [Concomitant]
     Active Substance: POTASSIUM
     Indication: Hypokalaemia
     Dosage: UNK
     Dates: start: 20140703
  19. SYNTHROID [Concomitant]
     Active Substance: LEVOTHYROXINE SODIUM
     Indication: Hypothyroidism
     Dosage: UNK
     Dates: start: 20120612
  20. ESTRADIOL [Concomitant]
     Active Substance: ESTRADIOL
     Indication: Hypogonadism
     Dosage: UNK
     Dates: start: 20150109
  21. ESTRADIOL [Concomitant]
     Active Substance: ESTRADIOL
     Indication: Empyema
     Dosage: UNK
     Route: 061
     Dates: start: 20161019, end: 20161019
  22. PERCOCET [Concomitant]
     Active Substance: ACETAMINOPHEN\OXYCODONE HYDROCHLORIDE
     Indication: Pain
     Dosage: UNK
     Route: 048
     Dates: start: 20131120, end: 20170608
  23. PERCOCET [Concomitant]
     Active Substance: ACETAMINOPHEN\OXYCODONE HYDROCHLORIDE
     Indication: Catheter site pain
     Dosage: UNK
     Route: 048
     Dates: start: 20140808, end: 20140808
  24. PERCOCET [Concomitant]
     Active Substance: ACETAMINOPHEN\OXYCODONE HYDROCHLORIDE
     Indication: Seizure
     Dosage: UNK
     Route: 048
     Dates: start: 20141117, end: 20141117
  25. PERCOCET [Concomitant]
     Active Substance: ACETAMINOPHEN\OXYCODONE HYDROCHLORIDE
     Indication: Pain
     Dosage: UNK
     Route: 048
     Dates: start: 20150410, end: 20150410
  26. PERCOCET [Concomitant]
     Active Substance: ACETAMINOPHEN\OXYCODONE HYDROCHLORIDE
     Dosage: UNK
     Route: 048
     Dates: start: 20150511, end: 20150511
  27. PROMETHAZINE HYDROCHLORIDE [Concomitant]
     Active Substance: PROMETHAZINE HYDROCHLORIDE
     Indication: Nausea
     Dosage: UNK
     Route: 048
     Dates: start: 20140410
  28. PROMETHAZINE HYDROCHLORIDE [Concomitant]
     Active Substance: PROMETHAZINE HYDROCHLORIDE
     Indication: Catheter site pain
     Dosage: UNK
     Route: 048
     Dates: start: 20140808, end: 20140808
  29. MORPHINE [Concomitant]
     Active Substance: MORPHINE
     Indication: Catheter site pain
     Dosage: UNK
     Dates: start: 20141117, end: 20141117
  30. MORPHINE [Concomitant]
     Active Substance: MORPHINE
     Indication: Hypocalcaemia
     Dosage: UNK
     Dates: start: 20150101, end: 20150101
  31. MORPHINE [Concomitant]
     Active Substance: MORPHINE
     Indication: Pain
     Dosage: UNK
     Dates: start: 20150108, end: 20150108
  32. MORPHINE [Concomitant]
     Active Substance: MORPHINE
     Indication: Idiopathic intracranial hypertension
     Dosage: UNK
     Dates: start: 20150511, end: 20150511
  33. MORPHINE [Concomitant]
     Active Substance: MORPHINE
     Dosage: UNK
     Dates: start: 20151025, end: 20151025
  34. MORPHINE [Concomitant]
     Active Substance: MORPHINE
     Dosage: UNK
     Route: 048
     Dates: start: 20160709, end: 201607
  35. MORPHINE [Concomitant]
     Active Substance: MORPHINE
     Dosage: UNK
     Route: 042
     Dates: start: 20161017, end: 20161017
  36. DILAUDID [Concomitant]
     Active Substance: HYDROMORPHONE HYDROCHLORIDE
     Indication: Hypocalcaemia
     Dosage: UNK
     Route: 042
     Dates: start: 20141125, end: 20141125
  37. BENADRYL [Concomitant]
     Active Substance: DIPHENHYDRAMINE HYDROCHLORIDE
     Indication: Headache
     Dosage: UNK
     Route: 042
     Dates: start: 20150101, end: 20150101
  38. BENADRYL [Concomitant]
     Active Substance: DIPHENHYDRAMINE HYDROCHLORIDE
     Dosage: UNK
     Route: 042
     Dates: start: 20150108, end: 20150108
  39. BENADRYL [Concomitant]
     Active Substance: DIPHENHYDRAMINE HYDROCHLORIDE
     Dosage: UNK
     Route: 042
     Dates: start: 20150511, end: 20150511
  40. BENADRYL [Concomitant]
     Active Substance: DIPHENHYDRAMINE HYDROCHLORIDE
     Dosage: UNK
     Route: 042
     Dates: start: 20150601, end: 20150601
  41. BENADRYL [Concomitant]
     Active Substance: DIPHENHYDRAMINE HYDROCHLORIDE
     Dosage: UNK
     Route: 042
     Dates: start: 20160906, end: 20160906
  42. TORADOL [Concomitant]
     Active Substance: KETOROLAC TROMETHAMINE
     Indication: Pain
     Dosage: UNK
     Dates: start: 20150108, end: 20150108
  43. TORADOL [Concomitant]
     Active Substance: KETOROLAC TROMETHAMINE
     Indication: Seizure
     Dosage: UNK
     Route: 042
     Dates: start: 20150410, end: 20150410
  44. CIPRO [Concomitant]
     Active Substance: CIPROFLOXACIN HYDROCHLORIDE
     Indication: Urinary tract infection
     Dosage: UNK
     Route: 048
     Dates: start: 20150410, end: 20150410
  45. SOLU-MEDROL [Concomitant]
     Active Substance: METHYLPREDNISOLONE SODIUM SUCCINATE
     Indication: Eczema
     Dosage: UNK
     Dates: start: 20150511, end: 20150511
  46. MYLANTA [Concomitant]
     Active Substance: ALUMINUM HYDROXIDE\DIMETHICONE\MAGNESIUM HYDROXIDE
     Dosage: UNK
     Dates: start: 20150511, end: 20150511
  47. LIDOCAINE [Concomitant]
     Active Substance: LIDOCAINE
     Dosage: UNK
     Dates: start: 20150511, end: 20150511
  48. PEPCID [Concomitant]
     Active Substance: FAMOTIDINE
     Indication: Hypersensitivity
     Dosage: UNK
     Dates: start: 20150511, end: 20150511
  49. PEPCID [Concomitant]
     Active Substance: FAMOTIDINE
     Indication: Pain
  50. PHENERGAN [Concomitant]
     Active Substance: PROMETHAZINE HYDROCHLORIDE
     Indication: Nausea
     Dosage: UNK
     Dates: start: 20150601, end: 20150601
  51. ADVIL [Concomitant]
     Active Substance: IBUPROFEN
     Indication: Chest pain
     Dosage: UNK
     Route: 048
     Dates: start: 20151001, end: 20151001
  52. ALBUTEROL SULFATE [Concomitant]
     Active Substance: ALBUTEROL SULFATE
     Indication: Dyspnoea
     Dosage: UNK
     Route: 050
     Dates: start: 20160106
  53. ROCEPHIN [Concomitant]
     Active Substance: CEFTRIAXONE SODIUM
     Indication: Meningitis
     Dosage: UNK
     Route: 042
     Dates: start: 20160106, end: 20160106
  54. CALCIUM GLUCONATE [Concomitant]
     Active Substance: CALCIUM GLUCONATE
     Indication: Headache
     Dosage: UNK
     Route: 042
     Dates: start: 20160301, end: 20160301
  55. KETOROLAC [Concomitant]
     Active Substance: KETOROLAC TROMETHAMINE
     Indication: Headache
     Dosage: UNK
     Route: 042
     Dates: start: 20160301, end: 20160301
  56. KETOROLAC [Concomitant]
     Active Substance: KETOROLAC TROMETHAMINE
     Indication: Idiopathic intracranial hypertension
     Dosage: UNK
     Route: 058
     Dates: start: 20160630, end: 20160630
  57. KETOROLAC [Concomitant]
     Active Substance: KETOROLAC TROMETHAMINE
     Indication: Empyema
     Dosage: UNK
     Route: 042
     Dates: start: 20161017, end: 20161017
  58. KETOROLAC [Concomitant]
     Active Substance: KETOROLAC TROMETHAMINE
     Dosage: UNK
     Route: 042
     Dates: start: 20161017, end: 20161019
  59. PROMETHAZINE [Concomitant]
     Active Substance: PROMETHAZINE HYDROCHLORIDE
     Indication: Headache
     Dosage: UNK
     Route: 042
     Dates: start: 20160301, end: 20160301
  60. SODIUM CHLORIDE [Concomitant]
     Active Substance: SODIUM CHLORIDE
     Indication: Headache
     Dosage: UNK
     Route: 042
     Dates: start: 20160301, end: 20160301
  61. SODIUM CHLORIDE [Concomitant]
     Active Substance: SODIUM CHLORIDE
     Dosage: UNK
     Route: 042
     Dates: start: 20160906, end: 20160906
  62. OXYCODONE [Concomitant]
     Active Substance: OXYCODONE
     Indication: Idiopathic intracranial hypertension
     Dosage: UNK
     Route: 048
     Dates: start: 20160614, end: 201606
  63. OXYCODONE [Concomitant]
     Active Substance: OXYCODONE
     Indication: Idiopathic intracranial hypertension
     Dosage: UNK
     Route: 048
     Dates: start: 20160709, end: 201607
  64. CYCLOBENZAPRINE [Concomitant]
     Active Substance: CYCLOBENZAPRINE
     Indication: Idiopathic intracranial hypertension
     Dosage: UNK
     Route: 048
     Dates: start: 20160709, end: 201607
  65. DOCUSATE SODIUM [Concomitant]
     Active Substance: DOCUSATE SODIUM
     Indication: Idiopathic intracranial hypertension
     Dosage: UNK
     Route: 048
     Dates: start: 20160709, end: 201607
  66. POLYETHYLENE GLYCOL [Concomitant]
     Active Substance: POLYETHYLENE GLYCOL
     Indication: Idiopathic intracranial hypertension
     Dosage: UNK
     Route: 048
     Dates: start: 20160709, end: 201607
  67. ONDANSETRON [Concomitant]
     Active Substance: ONDANSETRON
     Indication: Idiopathic intracranial hypertension
     Dosage: UNK
     Route: 058
     Dates: start: 20160630, end: 20160630
  68. ACETAMINOPHEN\HYDROCODONE [Concomitant]
     Active Substance: ACETAMINOPHEN\HYDROCODONE
     Indication: Idiopathic intracranial hypertension
     Dosage: UNK
     Route: 048
     Dates: start: 20160828, end: 201609
  69. TRAMADOL [Concomitant]
     Active Substance: TRAMADOL
     Indication: Idiopathic intracranial hypertension
     Dosage: UNK
     Route: 048
     Dates: start: 20160828, end: 201610
  70. KEFLEX [Concomitant]
     Active Substance: CEPHALEXIN
     Indication: Wound infection
     Dosage: UNK
     Route: 048
     Dates: start: 20160819, end: 20160828
  71. KEFLEX [Concomitant]
     Active Substance: CEPHALEXIN
     Indication: Wound dehiscence
     Dosage: UNK
     Route: 048
     Dates: start: 20170523, end: 20170530
  72. PIPERACILLIN AND TAZOBACTAM [Concomitant]
     Active Substance: PIPERACILLIN SODIUM\TAZOBACTAM SODIUM
     Indication: Empyema
     Dosage: UNK
     Route: 042
     Dates: start: 20161017, end: 20161017
  73. PIPERACILLIN AND TAZOBACTAM [Concomitant]
     Active Substance: PIPERACILLIN SODIUM\TAZOBACTAM SODIUM
     Dosage: UNK
     Route: 042
     Dates: start: 20161018, end: 20161020
  74. VANCOMYCIN [Concomitant]
     Active Substance: VANCOMYCIN
     Indication: Empyema
     Dosage: UNK
     Route: 042
     Dates: start: 20161017, end: 20161018
  75. IOPAMIDOL [Concomitant]
     Active Substance: IOPAMIDOL
     Indication: Empyema
     Dosage: UNK
     Route: 042
     Dates: start: 20161017, end: 20161017
  76. HEPARIN [Concomitant]
     Active Substance: HEPARIN SODIUM
     Indication: Empyema
     Dosage: UNK
     Route: 058
     Dates: start: 20161018, end: 20161020
  77. DAPTOMYCIN [Concomitant]
     Active Substance: DAPTOMYCIN
     Indication: Empyema
     Dosage: UNK
     Route: 042
     Dates: start: 20161019, end: 20161019
  78. CEFTRIAXONE [Concomitant]
     Active Substance: CEFTRIAXONE
     Indication: Empyema
     Dosage: UNK
     Route: 042
     Dates: start: 20161020, end: 20161027
  79. SENNA AND DOCUSATE SODIUM [Concomitant]
     Active Substance: DOCUSATE SODIUM\SENNOSIDES
     Indication: Empyema
     Dosage: UNK
     Route: 048
     Dates: start: 20161019, end: 20161025
  80. SENNA AND DOCUSATE SODIUM [Concomitant]
     Active Substance: DOCUSATE SODIUM\SENNOSIDES
     Indication: Constipation
     Dosage: UNK
     Route: 048
     Dates: start: 20161019, end: 20161025
  81. SENNA AND DOCUSATE SODIUM [Concomitant]
     Active Substance: DOCUSATE SODIUM\SENNOSIDES
     Dosage: UNK
     Route: 048
     Dates: start: 20170317, end: 20170317
  82. FLUCONAZOLE [Concomitant]
     Active Substance: FLUCONAZOLE
     Indication: Vaginal infection
     Dosage: UNK
     Route: 048
     Dates: start: 20161202, end: 20161208
  83. HYDROCORTISONE [Concomitant]
     Active Substance: HYDROCORTISONE
     Indication: Vaginal infection
     Dosage: UNK
     Route: 061
     Dates: start: 20161202, end: 20170210

REACTIONS (2)
  - Intracranial pressure increased [Not Recovered/Not Resolved]
  - Headache [Recovered/Resolved]

NARRATIVE: CASE EVENT DATE: 20160905
